FAERS Safety Report 4631916-9 (Version None)
Quarter: 2005Q2

REPORT INFORMATION
  Report Type: 
  Country: None (occurrence: None)
  Receive Date: 20050411
  Receipt Date: 20050329
  Transmission Date: 20051028
  Serious: Yes (Hospitalization)
  Sender: FDA-Public Use
  Company Number: FR-ABBOTT-05P-056-0295558-00

PATIENT
  Age: 34 Year
  Sex: Female

DRUGS (9)
  1. NORVIR [Suspect]
     Indication: HIV INFECTION
     Route: 048
     Dates: start: 20020101, end: 20040524
  2. INDINAVIR [Suspect]
     Indication: HIV INFECTION
     Route: 048
     Dates: start: 20020101, end: 20040524
  3. LAMIVUDINE AND ZIDOVUDINE [Suspect]
     Indication: HIV INFECTION
     Route: 048
     Dates: start: 20020101, end: 20040524
  4. ISONIAIDE [Concomitant]
     Indication: TUBERCULOSIS
     Route: 048
     Dates: start: 20040512
  5. RIFANPICINE [Concomitant]
     Indication: TUBERCULOSIS
     Route: 048
     Dates: start: 20040512, end: 20040517
  6. ETHANBUTOL [Concomitant]
     Indication: TUBERCULOSIS
     Route: 048
     Dates: start: 20040512
  7. RIFABUTINE [Concomitant]
     Indication: TUBERCULOSIS
     Route: 048
     Dates: start: 20040517
  8. CONBIVIR [Concomitant]
     Indication: HIV INFECTION
     Route: 048
     Dates: start: 20040610
  9. EFAVIRENZ [Concomitant]
     Indication: HIV INFECTION
     Route: 048
     Dates: start: 20040610

REACTIONS (4)
  - DRUG EXPOSURE DURING PREGNANCY [None]
  - HEPATITIS [None]
  - MEDICATION ERROR [None]
  - PULMONARY TUBERCULOSIS [None]
